FAERS Safety Report 18701438 (Version 2)
Quarter: 2021Q1

REPORT INFORMATION
  Report Type: Spontaneous
  Country: CA (occurrence: CA)
  Receive Date: 20210105
  Receipt Date: 20210108
  Transmission Date: 20210419
  Serious: Yes (Other)
  Sender: FDA-Public Use
  Company Number: CA-PFIZER INC-2020518092

PATIENT
  Sex: Female

DRUGS (1)
  1. CORTEF [Suspect]
     Active Substance: HYDROCORTISONE
     Dosage: LOW DOSE 8?10 MG (^LOW PHYS DOSE^)
     Dates: start: 2011

REACTIONS (4)
  - Lyme disease [Unknown]
  - Circumstance or information capable of leading to medication error [Unknown]
  - Infection [Unknown]
  - Blood immunoglobulin G decreased [Unknown]
